FAERS Safety Report 8306948-X (Version None)
Quarter: 2012Q2

REPORT INFORMATION
  Report Type: 
  Country: None (occurrence: None)
  Receive Date: 20120419
  Receipt Date: 20120417
  Transmission Date: 20120825
  Serious: Yes (Life-Threatening, Hospitalization, Other)
  Sender: FDA-Public Use
  Company Number: ADR-2011-10544

PATIENT
  Sex: Female

DRUGS (1)
  1. LIORESAL [Suspect]
     Indication: MUSCLE SPASTICITY
     Dosage: MCG, DAILY, INTRATH
     Route: 037

REACTIONS (11)
  - SOMNOLENCE [None]
  - THERAPEUTIC RESPONSE DECREASED [None]
  - DEVICE OCCLUSION [None]
  - IMPLANT SITE SWELLING [None]
  - MULTIPLE DRUG OVERDOSE [None]
  - DEVICE DISLOCATION [None]
  - MUSCLE SPASTICITY [None]
  - BRADYCARDIA [None]
  - HYPOTENSION [None]
  - DRUG WITHDRAWAL SYNDROME [None]
  - PRURITUS [None]
